FAERS Safety Report 12360587 (Version 2)
Quarter: 2016Q2

REPORT INFORMATION
  Report Type: Spontaneous
  Country: NZ (occurrence: NZ)
  Receive Date: 20160512
  Receipt Date: 20160519
  Transmission Date: 20160815
  Serious: Yes (Hospitalization, Other)
  Sender: FDA-Public Use
  Company Number: NZ-PFIZER INC-2016242545

PATIENT
  Age: 82 Year
  Sex: Male

DRUGS (2)
  1. DICLOFENAC [Interacting]
     Active Substance: DICLOFENAC
     Indication: GOUT
     Dosage: 100 MG, ONCE DAILY
     Route: 048
     Dates: start: 20081008, end: 20081117
  2. QUINAPRIL. [Suspect]
     Active Substance: QUINAPRIL
     Indication: ESSENTIAL HYPERTENSION
     Dosage: 5 MG, ONCE DAILY
     Route: 048
     Dates: start: 2003, end: 20081117

REACTIONS (5)
  - Renal impairment [Recovered/Resolved]
  - Drug interaction [Recovered/Resolved]
  - Arrhythmia [Recovered/Resolved]
  - Hyperkalaemia [Recovered/Resolved]
  - Syncope [Recovered/Resolved]

NARRATIVE: CASE EVENT DATE: 20081115
